FAERS Safety Report 7125782-X (Version None)
Quarter: 2011Q1

REPORT INFORMATION
  Report Type: 
  Country: None (occurrence: None)
  Receive Date: 20101129
  Receipt Date: 20101124
  Transmission Date: 20110831
  Serious: Yes (Hospitalization)
  Sender: FDA-Public Use
  Company Number: B0685863A

PATIENT
  Sex: Female

DRUGS (6)
  1. PREVISCAN [Concomitant]
     Route: 048
  2. PAROXETINE HCL [Suspect]
     Dosage: 20MG PER DAY
     Route: 048
     Dates: start: 20100825, end: 20100901
  3. BISOPROLOL FUMARATE AND HYDROCHLOROTHIAZIDE [Suspect]
     Dosage: 1UNIT PER DAY
     Route: 048
     Dates: start: 20100201
  4. TAHOR [Concomitant]
     Dosage: 10MG PER DAY
     Route: 048
  5. STILNOX [Concomitant]
     Dosage: 5MG PER DAY
     Route: 048
  6. LEVOTHYROXINE SODIUM [Concomitant]
     Dosage: 50MCG PER DAY
     Route: 048

REACTIONS (5)
  - DECREASED APPETITE [None]
  - ASTHENIA [None]
  - HYPONATRAEMIA [None]
  - GENERAL PHYSICAL HEALTH DETERIORATION [None]
  - DRUG INTERACTION [None]
